FAERS Safety Report 7286752-4 (Version None)
Quarter: 2011Q1

REPORT INFORMATION
  Report Type: 
  Country: None (occurrence: None)
  Receive Date: 20110210
  Receipt Date: 20110126
  Transmission Date: 20110831
  Serious: Yes (Other)
  Sender: FDA-Public Use
  Company Number: CA-GENENTECH-313675

PATIENT
  Sex: Female

DRUGS (1)
  1. XOLAIR [Suspect]
     Indication: ASTHMA
     Dosage: 300 MG, 1/MONTH
     Route: 058
     Dates: start: 20090408

REACTIONS (8)
  - OEDEMA [None]
  - GASTROINTESTINAL DISORDER [None]
  - DYSPNOEA EXERTIONAL [None]
  - WHEEZING [None]
  - PRODUCTIVE COUGH [None]
  - HEART RATE IRREGULAR [None]
  - BRONCHITIS [None]
  - DYSPNOEA [None]
